FAERS Safety Report 17213348 (Version 2)
Quarter: 2021Q3

REPORT INFORMATION
  Report Type: Report from Study
  Country: CA (occurrence: CA)
  Receive Date: 20191230
  Receipt Date: 20210702
  Transmission Date: 20211014
  Serious: Yes (Other)
  Sender: FDA-Public Use
  Company Number: CA-JNJFOC-20191239064

PATIENT
  Sex: Male

DRUGS (3)
  1. ABIRATERONE ACETATE. [Suspect]
     Active Substance: ABIRATERONE ACETATE
     Indication: PROSTATE CANCER METASTATIC
     Route: 048
  2. PREDNISONE. [Concomitant]
     Active Substance: PREDNISONE
     Indication: PROSTATE CANCER METASTATIC
     Route: 048
  3. ENZALUTAMIDE [Suspect]
     Active Substance: ENZALUTAMIDE
     Indication: PROSTATE CANCER METASTATIC
     Route: 048

REACTIONS (14)
  - Hypertension [Unknown]
  - Pain in extremity [Unknown]
  - Nausea [Unknown]
  - Seizure [Unknown]
  - Cognitive disorder [Unknown]
  - Alanine aminotransferase increased [Unknown]
  - Anxiety [Unknown]
  - Aspartate aminotransferase increased [Unknown]
  - Fracture [Unknown]
  - Fall [Unknown]
  - Transaminases increased [Unknown]
  - Atrial fibrillation [Unknown]
  - Fatigue [Unknown]
  - Back pain [Unknown]
